FAERS Safety Report 21274623 (Version 1)
Quarter: 2022Q3

REPORT INFORMATION
  Report Type: Spontaneous
  Country: US (occurrence: US)
  Receive Date: 20220831
  Receipt Date: 20220831
  Transmission Date: 20221027
  Serious: Yes (Other)
  Sender: FDA-Public Use
  Company Number: US-AMERICAN REGENT INC-2022001754

PATIENT
  Sex: Female
  Weight: 46.077 kg

DRUGS (2)
  1. FERRIC CARBOXYMALTOSE [Suspect]
     Active Substance: FERRIC CARBOXYMALTOSE
     Indication: Iron deficiency
     Dosage: 750 MILLIGRAM, SINGLE
     Route: 042
     Dates: start: 20150918, end: 20150918
  2. BLOOD BUILDER [CYANOCOBALAMIN;FOLIC ACID;IRON] [Concomitant]
     Indication: Iron deficiency
     Dosage: TWO TABLETS ONCE DAILY
     Route: 048
     Dates: start: 201401

REACTIONS (2)
  - Hypophosphataemia [Unknown]
  - Drug intolerance [Unknown]

NARRATIVE: CASE EVENT DATE: 20150101
